FAERS Safety Report 9465573 (Version 3)
Quarter: 2014Q1

REPORT INFORMATION
  Report Type: Report from Study
  Country: SE (occurrence: SE)
  Receive Date: 20130820
  Receipt Date: 20140218
  Transmission Date: 20141002
  Serious: Yes (Hospitalization)
  Sender: FDA-Public Use
  Company Number: SE-ROCHE-1262855

PATIENT
  Age: 65 Year
  Sex: Female

DRUGS (12)
  1. TOCILIZUMAB [Suspect]
     Indication: RHEUMATOID ARTHRITIS
     Route: 042
     Dates: start: 20130207
  2. ENALAPRIL [Suspect]
     Indication: PRODUCT USED FOR UNKNOWN INDICATION
     Route: 065
  3. DICLOPHENAC [Concomitant]
  4. OXYCONTIN [Concomitant]
  5. ALVEDON [Concomitant]
  6. OXASCAND [Concomitant]
  7. FLUNITRAZEPAM [Concomitant]
     Dosage: MYLAN
     Route: 065
  8. PRIMPERAN [Concomitant]
  9. MORFIN [Concomitant]
  10. OMEPRAZOLE [Concomitant]
  11. KALCIPOS-D [Concomitant]
     Dosage: DOSE: 500 MG/800
     Route: 065
  12. PREDNISOLONE [Concomitant]

REACTIONS (2)
  - C-reactive protein increased [Recovered/Resolved]
  - Local swelling [Recovering/Resolving]
